FAERS Safety Report 6370053-2 (Version None)
Quarter: 2009Q3

REPORT INFORMATION
  Report Type: 
  Country: None (occurrence: None)
  Receive Date: 20090923
  Receipt Date: 20070514
  Transmission Date: 20100115
  Serious: Yes (Hospitalization, Other)
  Sender: FDA-Public Use
  Company Number: US-ASTRAZENECA-2006UW20851

PATIENT
  Age: 15340 Day
  Sex: Female
  Weight: 111.6 kg

DRUGS (24)
  1. SEROQUEL [Suspect]
     Indication: SCHIZOPHRENIA
     Route: 048
     Dates: start: 19970101
  2. SEROQUEL [Suspect]
     Dosage: 100-700 MG
     Route: 048
     Dates: start: 20010223
  3. RISPERDAL [Suspect]
  4. ZYPREXA [Suspect]
     Route: 048
     Dates: start: 19981130
  5. THORAZINE [Concomitant]
  6. TRAZODONE [Concomitant]
     Route: 048
     Dates: start: 20010619
  7. PRILOSEC [Concomitant]
     Dates: start: 19981130
  8. EFFEXOR [Concomitant]
     Route: 048
     Dates: start: 20010122
  9. ATENOLOL [Concomitant]
     Dates: start: 20030614
  10. PLAVIX [Concomitant]
     Dates: start: 20030614
  11. ALTACE [Concomitant]
     Dates: start: 20030614
  12. NEXIUM [Concomitant]
     Dates: start: 20010122
  13. HYDROCHLOROTHIAZIDE [Concomitant]
     Dates: start: 20030614
  14. PREMARIN [Concomitant]
     Dates: start: 20010122
  15. ASPIRIN [Concomitant]
     Dates: start: 20030614
  16. VIOXX [Concomitant]
     Dates: start: 20030614
  17. METHOTREXATE [Concomitant]
     Dosage: 2.5 MG FOUR TIMES IN A WEEK
     Dates: start: 20030614
  18. PLAQUENIL [Concomitant]
     Dates: start: 20030614
  19. ZOCOR [Concomitant]
     Dates: start: 20030614
  20. GLUCOPHAGE XR [Concomitant]
     Dates: start: 20030614
  21. ADVAIR HFA [Concomitant]
     Dosage: 250/50 TWICE IN A DAY
     Dates: start: 20030614
  22. XANAX [Concomitant]
     Dates: start: 20010122
  23. FUROSEMIDE [Concomitant]
     Route: 048
     Dates: start: 20010122
  24. DITROPAN XL [Concomitant]
     Route: 048
     Dates: start: 20010122

REACTIONS (3)
  - ABDOMINAL PAIN [None]
  - DIABETES MELLITUS [None]
  - PANCREATITIS [None]
